FAERS Safety Report 4748733-1 (Version None)
Quarter: 2005Q3

REPORT INFORMATION
  Report Type: 
  Country: None (occurrence: None)
  Receive Date: 20050817
  Receipt Date: 20050806
  Transmission Date: 20060218
  Serious: Yes (Other)
  Sender: FDA-Public Use
  Company Number: 2005075515

PATIENT
  Age: 31 Year
  Sex: Female

DRUGS (4)
  1. LIPITOR [Suspect]
     Indication: BLOOD CHOLESTEROL INCREASED
     Dosage: 20 MG (20 MG, 1 IN 1 D),ORAL
     Route: 048
     Dates: start: 20050211, end: 20050502
  2. ORTHO EVRA (ETHINYLESTRADIOL, NORELGESTROMIN) [Suspect]
     Indication: CONTRACEPTION
     Dosage: 1 IN 1 WK, TRANSDERMAL
     Route: 062
     Dates: start: 20050210, end: 20050502
  3. EFFEXOR [Concomitant]
  4. ASACOL [Concomitant]

REACTIONS (3)
  - ABORTION SPONTANEOUS [None]
  - DRUG EXPOSURE DURING PREGNANCY [None]
  - PREGNANCY [None]
